FAERS Safety Report 8143300-4 (Version None)
Quarter: 2012Q1

REPORT INFORMATION
  Report Type: 
  Country: None (occurrence: None)
  Receive Date: 20120217
  Receipt Date: 20120209
  Transmission Date: 20120608
  Serious: Yes (Hospitalization)
  Sender: FDA-Public Use
  Company Number: US-BAYER-2011-072693

PATIENT
  Age: 48 Year
  Sex: Female
  Weight: 60.771 kg

DRUGS (17)
  1. YAZ [Suspect]
     Indication: CONTRACEPTION
     Dosage: UNK
     Route: 048
     Dates: start: 20060725, end: 20091013
  2. FLU SHOT [Concomitant]
     Dosage: 0.5 ML, UNK
     Route: 030
     Dates: start: 20090902
  3. YAZ [Suspect]
     Indication: ACNE
  4. EFFEXOR XR [Concomitant]
     Indication: DEPRESSION
     Dosage: 150 MG, UNK
     Route: 048
     Dates: start: 20001015
  5. YASMIN [Suspect]
  6. IBUPROFEN [Concomitant]
     Indication: PAIN
     Dosage: 800 MG, UNK
     Route: 048
     Dates: start: 20090731
  7. VITAMIN B-12 [Concomitant]
     Indication: VITAMIN SUPPLEMENTATION
     Dosage: UNK
     Route: 030
     Dates: start: 20090902
  8. YASMIN [Suspect]
     Indication: ACNE
  9. YAZ [Suspect]
     Indication: PREMENSTRUAL SYNDROME
  10. ZOCOR [Concomitant]
     Indication: BLOOD CHOLESTEROL INCREASED
     Dosage: 20 MG, UNK
     Route: 048
     Dates: start: 20080209
  11. YASMIN [Suspect]
     Indication: CONTRACEPTION
     Dosage: UNK
     Route: 048
     Dates: start: 20051107, end: 20060725
  12. YAZ [Suspect]
  13. ASCORBIC ACID [Concomitant]
     Indication: VITAMIN SUPPLEMENTATION
     Dosage: UNK
     Route: 048
     Dates: start: 20000101
  14. ACETAMINOPHEN [Concomitant]
     Indication: PAIN
     Route: 048
  15. EFFEXOR XR [Concomitant]
     Indication: ANXIETY
  16. VITAMIN D [Concomitant]
     Indication: VITAMIN SUPPLEMENTATION
     Dosage: UNK
     Route: 048
     Dates: start: 20090515
  17. YASMIN [Suspect]
     Indication: PREMENSTRUAL SYNDROME

REACTIONS (7)
  - ANXIETY [None]
  - DEEP VEIN THROMBOSIS [None]
  - DEPRESSION [None]
  - INJURY [None]
  - PAIN [None]
  - PANIC ATTACK [None]
  - ANHEDONIA [None]
